FAERS Safety Report 9814962 (Version 1)
Quarter: 2014Q1

REPORT INFORMATION
  Report Type: Spontaneous
  Country: US (occurrence: US)
  Receive Date: 20140113
  Receipt Date: 20140113
  Transmission Date: 20141002
  Serious: Yes (Hospitalization, Other)
  Sender: FDA-Public Use
  Company Number: US-ALVOGEN-2013AL002924

PATIENT
  Age: 62 Year
  Sex: Male

DRUGS (20)
  1. TRAZODONE [Suspect]
     Indication: DEPRESSION
     Route: 048
  2. OXYCODONE [Interacting]
     Indication: FRACTURE PAIN
     Route: 048
  3. TRAMADOL [Interacting]
     Indication: FRACTURE PAIN
     Route: 048
  4. TRAMADOL [Interacting]
     Indication: FRACTURE PAIN
     Route: 048
  5. BUPROPION [Interacting]
     Indication: PRODUCT USED FOR UNKNOWN INDICATION
     Route: 048
  6. LORAZEPAM [Concomitant]
     Indication: ALCOHOL WITHDRAWAL SYNDROME
     Route: 048
  7. LORAZEPAM [Concomitant]
     Indication: ALCOHOL WITHDRAWAL SYNDROME
     Route: 048
  8. LORAZEPAM [Concomitant]
     Indication: ALCOHOL WITHDRAWAL SYNDROME
     Route: 048
  9. LORAZEPAM [Concomitant]
     Indication: ALCOHOL WITHDRAWAL SYNDROME
     Route: 048
  10. LORAZEPAM [Concomitant]
     Indication: ALCOHOL WITHDRAWAL SYNDROME
     Route: 042
  11. LORAZEPAM [Concomitant]
     Indication: ALCOHOL WITHDRAWAL SYNDROME
     Route: 042
  12. HEPARIN [Concomitant]
     Indication: PRODUCT USED FOR UNKNOWN INDICATION
     Route: 030
  13. RANITIDINE [Concomitant]
     Indication: PRODUCT USED FOR UNKNOWN INDICATION
     Route: 048
  14. DIOCTYL SODIUM SULFOSUCCINATE [Concomitant]
     Indication: PRODUCT USED FOR UNKNOWN INDICATION
     Route: 048
  15. ACETAMINOPHEN [Concomitant]
     Indication: PAIN
     Route: 048
  16. POLYETHYLENE GLYCOL 3350 GRX [Concomitant]
     Indication: CONSTIPATION
     Route: 048
  17. CALCIUM+D3 [Concomitant]
     Indication: PRODUCT USED FOR UNKNOWN INDICATION
     Route: 048
  18. THIAMINE [Concomitant]
     Indication: PRODUCT USED FOR UNKNOWN INDICATION
     Route: 048
  19. FOLATE [Concomitant]
     Route: 048
  20. MULTI-VIT [Concomitant]
     Indication: PRODUCT USED FOR UNKNOWN INDICATION

REACTIONS (2)
  - Serotonin syndrome [Recovered/Resolved]
  - Drug interaction [None]
